FAERS Safety Report 9167089 (Version 1)
Quarter: 2013Q1

REPORT INFORMATION
  Report Type: Spontaneous
  Country: US (occurrence: None)
  Receive Date: 20130228
  Receipt Date: 20130228
  Transmission Date: 20140127
  Serious: Yes (Other)
  Sender: FDA-Public Use
  Company Number: 2013AP003259

PATIENT
  Sex: Female

DRUGS (4)
  1. AZELASTINE HYDROCHLORIDE NASAL SOLUTION [Suspect]
     Indication: SINUS DISORDER
     Dosage: BID; NAS
     Dates: start: 20130211, end: 20130219
  2. SYMBICORT [Concomitant]
  3. PANTOPRAZOLE [Concomitant]
  4. AZELASTINE [Concomitant]

REACTIONS (1)
  - Cardiac flutter [None]
